FAERS Safety Report 4307022-X (Version None)
Quarter: 2004Q1

REPORT INFORMATION
  Report Type: 
  Country: None (occurrence: None)
  Receive Date: 20040227
  Receipt Date: 20020219
  Transmission Date: 20041129
  Serious: Yes (Death, Hospitalization)
  Sender: FDA-Public Use
  Company Number: US-ROCHE-309507

PATIENT
  Age: 61 Year
  Sex: Male
  Weight: 90 kg

DRUGS (18)
  1. MYCOPHENOLATE MOFETIL [Suspect]
     Route: 048
     Dates: start: 20020204, end: 20030207
  2. NEORAL [Concomitant]
     Dates: start: 20020204, end: 20030207
  3. PREDNISONE [Concomitant]
     Route: 048
     Dates: start: 20020204, end: 20030207
  4. LOPRESSOR [Concomitant]
     Dates: start: 20020204, end: 20030207
  5. NORVASC [Concomitant]
     Dates: start: 20020204, end: 20030207
  6. BACTRIM [Concomitant]
     Dates: start: 20020204, end: 20030207
  7. NYSTATIN [Concomitant]
     Dates: start: 20020204, end: 20030207
  8. MULTI-VITAMIN [Concomitant]
     Dates: start: 20020204, end: 20030207
  9. FOLIC ACID [Concomitant]
     Dates: start: 20020204, end: 20030207
  10. PEPCID [Concomitant]
     Dates: start: 20020204, end: 20030207
  11. CYTOVENE [Concomitant]
     Route: 048
  12. COLACE [Concomitant]
  13. IRON NOS [Concomitant]
     Route: 048
  14. INSULIN [Concomitant]
     Dates: end: 20030207
  15. DACLIZUMAB [Concomitant]
     Dates: start: 20020204, end: 20020204
  16. K-DUR 10 [Concomitant]
     Dates: start: 20020214, end: 20020214
  17. COZAAR [Concomitant]
     Dates: start: 20020616, end: 20030207
  18. FESO4 [Concomitant]
     Dates: start: 20020204, end: 20030207

REACTIONS (5)
  - CARDIAC FAILURE CONGESTIVE [None]
  - DIALYSIS [None]
  - HAEMOGLOBIN DECREASED [None]
  - KIDNEY ANASTOMOSIS [None]
  - MYOCARDIAL INFARCTION [None]
